FAERS Safety Report 4346243-7 (Version None)
Quarter: 2004Q2

REPORT INFORMATION
  Report Type: 
  Country: None (occurrence: None)
  Receive Date: 20040423
  Receipt Date: 20040423
  Transmission Date: 20050107
  Serious: Yes (Hospitalization, Disabling)
  Sender: FDA-Public Use
  Company Number: None

PATIENT
  Sex: Male

DRUGS (3)
  1. ADDERALL 10 [Suspect]
     Indication: CARDIOMYOPATHY
  2. FLUOXETINE [Concomitant]
  3. FUROSEMIDE [Concomitant]

REACTIONS (12)
  - CARDIAC FAILURE CONGESTIVE [None]
  - CARDIOMEGALY [None]
  - CHEST PAIN [None]
  - DRUG ABUSER [None]
  - GALLOP RHYTHM PRESENT [None]
  - HAEMOPTYSIS [None]
  - MYOCARDITIS [None]
  - NASOPHARYNGITIS [None]
  - PALLOR [None]
  - PERIPHERAL COLDNESS [None]
  - TACHYPNOEA [None]
  - WHEEZING [None]
